FAERS Safety Report 8087750-3 (Version None)
Quarter: 2012Q1

REPORT INFORMATION
  Report Type: 
  Country: None (occurrence: None)
  Receive Date: 20120128
  Receipt Date: 20110609
  Transmission Date: 20120608
  Serious: No
  Sender: FDA-Public Use
  Company Number: US-ABBOTT-11P-163-0728822-00

PATIENT
  Age: 59 Year
  Sex: Female

DRUGS (10)
  1. HUMIRA [Suspect]
     Indication: CROHN'S DISEASE
     Dosage: LOADING DOSE
     Dates: start: 20110522, end: 20110522
  2. SIMVASTATIN [Concomitant]
     Indication: BLOOD CHOLESTEROL INCREASED
     Dosage: 80 MG DAILY
  3. OXYCODONE HCL [Concomitant]
     Indication: PAIN
     Dosage: PRN
  4. ZETIA [Concomitant]
     Indication: BLOOD CHOLESTEROL INCREASED
     Dosage: 10 MG
  5. ATENOLOL [Concomitant]
     Indication: HYPERTENSION
  6. ASACOL [Concomitant]
     Indication: PRODUCT USED FOR UNKNOWN INDICATION
  7. CLARINEX [Concomitant]
     Indication: HYPERSENSITIVITY
     Dosage: DAILY
  8. VITAMIN B-12 [Concomitant]
     Indication: PRODUCT USED FOR UNKNOWN INDICATION
     Route: 050
  9. ZANTAC [Concomitant]
     Indication: GASTROOESOPHAGEAL REFLUX DISEASE
  10. RESTORIL [Concomitant]
     Indication: INSOMNIA
     Dosage: 30 MG AT NIGHT

REACTIONS (12)
  - RASH PUSTULAR [None]
  - HYPERHIDROSIS [None]
  - FEELING COLD [None]
  - INJECTION SITE PAIN [None]
  - RASH MACULAR [None]
  - PAIN IN EXTREMITY [None]
  - ERYTHEMA [None]
  - GENERALISED OEDEMA [None]
  - URTICARIA [None]
  - HAEMORRHAGE [None]
  - FATIGUE [None]
  - SKIN DISCOLOURATION [None]
